FAERS Safety Report 9057872 (Version 1)
Quarter: 2013Q1

REPORT INFORMATION
  Report Type: Spontaneous
  Country: US (occurrence: None)
  Receive Date: 20130117
  Receipt Date: 20130117
  Transmission Date: 20140127
  Serious: Yes (Death)
  Sender: FDA-Public Use
  Company Number: AUR-APL-2013-00385

PATIENT
  Age: 58 Year
  Sex: Male

DRUGS (4)
  1. ALPRAZOLAM (ALPRAZOLAM) [Suspect]
     Dosage: UNKNOWN
  2. ZOLPIDEM [Suspect]
     Dosage: UNKNOWN
  3. FENTANYL (FENTANYL) [Suspect]
     Dosage: ORAL
     Route: 048
  4. ETHANOL [Suspect]
     Dosage: UNKNOWN

REACTIONS (2)
  - Drug abuse [None]
  - Toxicity to various agents [None]
